FAERS Safety Report 18215272 (Version 1)
Quarter: 2020Q3

REPORT INFORMATION
  Report Type: Spontaneous
  Country: CN (occurrence: CN)
  Receive Date: 20200831
  Receipt Date: 20200831
  Transmission Date: 20201103
  Serious: Yes (Other)
  Sender: FDA-Public Use
  Company Number: CN-BAXTER-2020BAX017674

PATIENT
  Age: 28 Year
  Sex: Female
  Weight: 47 kg

DRUGS (13)
  1. 0.9% SODIUM CHLORIDE INJECTION [Suspect]
     Active Substance: SODIUM CHLORIDE
     Dosage: DOSE RE?INTRODUCED, PHARMORUBICIN + NS
     Route: 041
     Dates: start: 202008
  2. 0.9% SODIUM CHLORIDE INJECTION [Suspect]
     Active Substance: SODIUM CHLORIDE
     Indication: MEDICATION DILUTION
     Dosage: FIRST TO THIRD CHEMOTHERAPY, ENDOXAN + NS
     Route: 042
  3. PHARMORUBICIN [Suspect]
     Active Substance: EPIRUBICIN
     Dosage: DOSE RE?INTRODUCED, PHARMORUBICIN + NS
     Route: 041
     Dates: start: 202008
  4. ENDOXAN [Suspect]
     Active Substance: CYCLOPHOSPHAMIDE
     Indication: BREAST CANCER FEMALE
     Dosage: FIRST TO THIRD CHEMOTHERAPY, ENDOXAN + NS
     Route: 042
  5. 0.9% SODIUM CHLORIDE INJECTION [Suspect]
     Active Substance: SODIUM CHLORIDE
     Dosage: FOURTH CHEMOTHERAPY, ENDOXAN 750 MG + NS 40 ML
     Route: 042
     Dates: start: 20200730, end: 20200730
  6. 0.9% SODIUM CHLORIDE INJECTION [Suspect]
     Active Substance: SODIUM CHLORIDE
     Dosage: DOSE RE?INTRODUCED, ENDOXAN + NS
     Route: 042
     Dates: start: 202008
  7. JINYOULI [Concomitant]
     Indication: PROPHYLAXIS
     Route: 058
     Dates: start: 20200731
  8. ENDOXAN [Suspect]
     Active Substance: CYCLOPHOSPHAMIDE
     Dosage: FOURTH CHEMOTHERAPY, ENDOXAN 750 MG + NS 40 ML
     Route: 042
     Dates: start: 20200730, end: 20200730
  9. 0.9% SODIUM CHLORIDE INJECTION [Suspect]
     Active Substance: SODIUM CHLORIDE
     Dosage: FIRST TO THIRD CHEMOTHERAPY, PHARMORUBICIN + NS
     Route: 041
  10. 0.9% SODIUM CHLORIDE INJECTION [Suspect]
     Active Substance: SODIUM CHLORIDE
     Dosage: FOURTH CHEMOTHERAPY, PHARMORUBICIN 115 MG + NS 100 ML
     Route: 041
     Dates: start: 20200730, end: 20200730
  11. PHARMORUBICIN [Suspect]
     Active Substance: EPIRUBICIN
     Indication: BREAST CANCER FEMALE
     Dosage: FIRST TO THIRD CHEMOTHERAPY, PHARMORUBICIN + NS
     Route: 041
  12. PHARMORUBICIN [Suspect]
     Active Substance: EPIRUBICIN
     Dosage: FOURTH CHEMOTHERAPY, PHARMORUBICIN 115 MG + NS 100 ML
     Route: 041
     Dates: start: 20200730, end: 20200730
  13. ENDOXAN [Suspect]
     Active Substance: CYCLOPHOSPHAMIDE
     Dosage: DOSE RE?INTRODUCED, ENDOXAN + NS
     Route: 042
     Dates: start: 202008

REACTIONS (2)
  - Leukopenia [Recovered/Resolved]
  - Agranulocytosis [Recovered/Resolved]

NARRATIVE: CASE EVENT DATE: 20200809
